FAERS Safety Report 5397627-X (Version None)
Quarter: 2007Q3

REPORT INFORMATION
  Report Type: 
  Country: None (occurrence: None)
  Receive Date: 20070723
  Receipt Date: 20070723
  Transmission Date: 20080115
  Serious: Yes (Other)
  Sender: FDA-Public Use
  Company Number: None

PATIENT
  Age: 61 Year
  Sex: Male
  Weight: 112.4921 kg

DRUGS (2)
  1. INDOMETHICIN 50MG. [Suspect]
     Indication: ARTHRITIS
     Dosage: 1 CAPSULE TWICE DAILY
  2. INDOMETHICIN 50MG. [Suspect]
     Indication: MUSCLE SPASMS
     Dosage: 1 CAPSULE TWICE DAILY

REACTIONS (5)
  - DYSPHAGIA [None]
  - PHARYNGEAL ERYTHEMA [None]
  - PHARYNGEAL OEDEMA [None]
  - PHARYNGOLARYNGEAL PAIN [None]
  - SPEECH DISORDER [None]
